FAERS Safety Report 14856710 (Version 1)
Quarter: 2018Q2

REPORT INFORMATION
  Report Type: Spontaneous
  Country: US (occurrence: US)
  Receive Date: 20180507
  Receipt Date: 20180507
  Transmission Date: 20180711
  Serious: No
  Sender: FDA-Public Use
  Company Number: US-ROCHE-2079680

PATIENT
  Sex: Female

DRUGS (6)
  1. TUMS [Concomitant]
     Active Substance: CALCIUM CARBONATE
     Route: 065
  2. ESBRIET [Suspect]
     Active Substance: PIRFENIDONE
     Route: 048
     Dates: start: 20180213
  3. ESBRIET [Suspect]
     Active Substance: PIRFENIDONE
     Dosage: FOR 1 WEEK
     Route: 048
  4. SELENIUM [Concomitant]
     Active Substance: SELENIUM
     Route: 065
  5. ESBRIET [Suspect]
     Active Substance: PIRFENIDONE
     Indication: IDIOPATHIC PULMONARY FIBROSIS
     Dosage: FOR 1 WEEK; PRESENT
     Route: 048
     Dates: start: 20180213
  6. PROBIOTIC (ENZYMES, INC) [Concomitant]
     Route: 065

REACTIONS (1)
  - Sunburn [Not Recovered/Not Resolved]
